FAERS Safety Report 16999671 (Version 1)
Quarter: 2019Q4

REPORT INFORMATION
  Report Type: Spontaneous
  Country: SE (occurrence: SE)
  Receive Date: 20191106
  Receipt Date: 20191106
  Transmission Date: 20200122
  Serious: Yes (Hospitalization)
  Sender: FDA-Public Use
  Company Number: SE-MYLANLABS-2019M1104612

PATIENT
  Age: 78 Year
  Sex: Female

DRUGS (13)
  1. OMEPRAZOLE. [Concomitant]
     Active Substance: OMEPRAZOLE
     Dosage: 20 MILLIGRAM, QD (ENTEROKAPSLAR)
     Route: 048
     Dates: start: 20171030
  2. ACETYLCYSTEINE. [Concomitant]
     Active Substance: ACETYLCYSTEINE
     Dosage: 1 DOSAGE FORM, BID
     Dates: start: 20170511
  3. FURIX [Concomitant]
     Dosage: 40 MILLIGRAM, QD
     Route: 048
     Dates: start: 20190109
  4. BISOPROLOL [Suspect]
     Active Substance: BISOPROLOL
     Indication: ATRIAL FIBRILLATION
     Dosage: UNK
     Route: 065
     Dates: end: 20190221
  5. OVESTERIN [Concomitant]
     Active Substance: ESTRIOL
     Dosage: UNK, 2 QW
     Route: 067
     Dates: start: 20170116
  6. ATORVASTATIN [Concomitant]
     Active Substance: ATORVASTATIN
     Dosage: 20 MILLIGRAM, QD
     Route: 048
     Dates: start: 20170128
  7. ATARAX [Concomitant]
     Active Substance: HYDROXYZINE HYDROCHLORIDE
     Dosage: 1-2 TABLETTER V.B. 1 GGR/DAG
     Route: 048
     Dates: start: 20181126
  8. ELIQUIS [Concomitant]
     Active Substance: APIXABAN
     Dosage: 10 MILLIGRAM, QD
     Route: 048
     Dates: start: 20181222
  9. PROLIA [Concomitant]
     Active Substance: DENOSUMAB
     Dosage: 60 MILLIGRAM, 26 WEEK
     Route: 058
     Dates: start: 20180320
  10. BRICANYL [Concomitant]
     Active Substance: TERBUTALINE SULFATE
     Dosage: 1 INHALATION VID BEHOV 4 GGR/DAG
     Dates: start: 20181208
  11. BUFOMIX [Concomitant]
     Dosage: 4 DOSAGE FORM, QD (160 MIKROGRAM/4,5 MIKROGRAM/INHALATION INHALATIONSPU)
     Route: 055
     Dates: start: 20190107
  12. ALVEDON [Concomitant]
     Active Substance: ACETAMINOPHEN
     Dosage: 1-2 TABLETTER V.B.
     Dates: start: 20170818
  13. MINIDERM                           /00200601/ [Concomitant]
     Dosage: 1 APPLICERING V.B.
     Dates: start: 20181126

REACTIONS (2)
  - Urticaria [Recovered/Resolved]
  - Dyspnoea [Recovered/Resolved]

NARRATIVE: CASE EVENT DATE: 2019
